FAERS Safety Report 4350347-2 (Version None)
Quarter: 2004Q2

REPORT INFORMATION
  Report Type: 
  Country: None (occurrence: None)
  Receive Date: 20040427
  Receipt Date: 20031015
  Transmission Date: 20050107
  Serious: No
  Sender: FDA-Public Use
  Company Number: 000672

PATIENT
  Sex: Female

DRUGS (6)
  1. ZEVALIN [Suspect]
     Indication: NON-HODGKIN'S LYMPHOMA
     Dosage: SEE IMAGE
     Route: 042
     Dates: start: 20020101, end: 20020101
  2. ZEVALIN [Suspect]
     Indication: NON-HODGKIN'S LYMPHOMA
     Dosage: SEE IMAGE
     Route: 042
     Dates: start: 20020101, end: 20020101
  3. ZEVALIN [Suspect]
     Indication: NON-HODGKIN'S LYMPHOMA
     Dosage: SEE IMAGE
     Route: 042
     Dates: start: 20020101, end: 20020101
  4. ZEVALIN [Suspect]
     Indication: NON-HODGKIN'S LYMPHOMA
     Dosage: SEE IMAGE
     Route: 042
     Dates: start: 20020101, end: 20020101
  5. .. [Suspect]
  6. .. [Suspect]

REACTIONS (1)
  - DISEASE PROGRESSION [None]
